FAERS Safety Report 8111910-6 (Version None)
Quarter: 2012Q1

REPORT INFORMATION
  Report Type: 
  Country: None (occurrence: None)
  Receive Date: 20120203
  Receipt Date: 20110314
  Transmission Date: 20120608
  Serious: No
  Sender: FDA-Public Use
  Company Number: US-GLAXOSMITHKLINE-A0918038A

PATIENT
  Age: 68 Year
  Sex: Male

DRUGS (3)
  1. DIOVAN [Concomitant]
  2. ARIXTRA [Suspect]
     Indication: ANTICOAGULANT THERAPY
     Dosage: 2.5MG PER DAY
     Route: 058
     Dates: start: 20110309, end: 20110313
  3. LIPITOR [Concomitant]

REACTIONS (2)
  - INCISIONAL DRAINAGE [None]
  - OEDEMA PERIPHERAL [None]
